FAERS Safety Report 15749308 (Version 4)
Quarter: 2019Q2

REPORT INFORMATION
  Report Type: Spontaneous
  Country: US (occurrence: US)
  Receive Date: 20181221
  Receipt Date: 20190604
  Transmission Date: 20190711
  Serious: No
  Sender: FDA-Public Use
  Company Number: US-PFIZER INC-2018524870

PATIENT
  Age: 63 Year
  Sex: Female

DRUGS (13)
  1. VITAMIN B6 [Suspect]
     Active Substance: PYRIDOXINE HYDROCHLORIDE
     Dosage: 100 MG, DAILY
  2. LISINOPRIL. [Suspect]
     Active Substance: LISINOPRIL
     Dosage: 2.5 MG, UNK
  3. GINKOBA M [Suspect]
     Active Substance: GINKGO\VITAMINS
     Dosage: 100 MG, DAILY
  4. ATORVASTATIN CALCIUM. [Suspect]
     Active Substance: ATORVASTATIN CALCIUM
     Dosage: 10 MG, 1X/DAY; [EVERY BEDTIME]
  5. TIZANIDINE. [Suspect]
     Active Substance: TIZANIDINE
     Dosage: 4 MG, 3X/DAY
  6. LYRICA [Suspect]
     Active Substance: PREGABALIN
     Dosage: 75 MG, 3X/DAY
     Route: 048
  7. HUMALOG [Suspect]
     Active Substance: INSULIN LISPRO
     Dosage: 100 U /ML
  8. VITAMIN D3 [Suspect]
     Active Substance: CHOLECALCIFEROL
     Dosage: 1000 IU, DAILY
  9. APIDRA SOLOSTAR [Suspect]
     Active Substance: INSULIN GLULISINE
     Dosage: 100 U/ML (3ML)
  10. VITAMIN B12 [Suspect]
     Active Substance: CYANOCOBALAMIN
     Dosage: 100 UG, DAILY
  11. METFORMIN [Suspect]
     Active Substance: METFORMIN HYDROCHLORIDE
     Dosage: 1000 , 2X/DAY
  12. AMITRIPTYLINE [Suspect]
     Active Substance: AMITRIPTYLINE
     Dosage: 25 MG, UNK
  13. FISH OIL [Suspect]
     Active Substance: FISH OIL
     Dosage: 1000 MG, DAILY

REACTIONS (1)
  - Drug hypersensitivity [Unknown]
